FAERS Safety Report 10883734 (Version 1)
Quarter: 2015Q1

REPORT INFORMATION
  Report Type: Report from Study
  Country: NL (occurrence: NL)
  Receive Date: 20150303
  Receipt Date: 20150303
  Transmission Date: 20150721
  Serious: Yes (Hospitalization)
  Sender: FDA-Public Use
  Company Number: NL-AMGEN-NLDSL2015018059

PATIENT
  Age: 70 Year
  Sex: Male

DRUGS (1)
  1. XGEVA [Suspect]
     Active Substance: DENOSUMAB
     Indication: PROPHYLAXIS
     Dosage: 1.7 ML (70 MG/ML), Q4WK
     Route: 058
     Dates: start: 20150213

REACTIONS (1)
  - Decreased immune responsiveness [Unknown]
